FAERS Safety Report 5837244-8 (Version None)
Quarter: 2008Q3

REPORT INFORMATION
  Report Type: 
  Country: None (occurrence: None)
  Receive Date: 20080807
  Receipt Date: 20080730
  Transmission Date: 20090109
  Serious: Yes (Other)
  Sender: FDA-Public Use
  Company Number: US-BAYER-200829607NA

PATIENT
  Age: 63 Year
  Sex: Female

DRUGS (1)
  1. ULTRAVIST 300 [Suspect]
     Indication: ANGIOGRAM
     Dosage: TOTAL DAILY DOSE: 150 ML  UNIT DOSE: 150 ML
     Route: 042
     Dates: start: 20080718, end: 20080718

REACTIONS (3)
  - BACK PAIN [None]
  - DYSPHAGIA [None]
  - SWELLING FACE [None]
